FAERS Safety Report 20757201 (Version 2)
Quarter: 2022Q2

REPORT INFORMATION
  Report Type: Spontaneous
  Country: AR (occurrence: AR)
  Receive Date: 20220427
  Receipt Date: 20220510
  Transmission Date: 20220721
  Serious: Yes (Hospitalization)
  Sender: FDA-Public Use
  Company Number: AR-SA-SAC20220217000843

PATIENT
  Age: 41 Year
  Sex: Male

DRUGS (2)
  1. FABRAZYME [Suspect]
     Active Substance: AGALSIDASE BETA
     Indication: Fabry^s disease
     Dosage: UNK
  2. AZT [Concomitant]
     Active Substance: ZIDOVUDINE
     Indication: Immunisation
     Dosage: UNK (BOOSTER)
     Dates: start: 20220210, end: 20220210

REACTIONS (3)
  - COVID-19 [Recovered/Resolved]
  - Depressed mood [Unknown]
  - Intentional dose omission [Unknown]

NARRATIVE: CASE EVENT DATE: 20211201
